FAERS Safety Report 17362584 (Version 1)
Quarter: 2020Q1

REPORT INFORMATION
  Report Type: Spontaneous
  Country: FI (occurrence: FI)
  Receive Date: 20200203
  Receipt Date: 20200203
  Transmission Date: 20200409
  Serious: Yes (Disabling)
  Sender: FDA-Public Use
  Company Number: FI-OTSUKA-2020_002937

PATIENT
  Age: 52 Year
  Sex: Female

DRUGS (1)
  1. ABILIFY MAINTENA [Suspect]
     Active Substance: ARIPIPRAZOLE
     Indication: PRODUCT USED FOR UNKNOWN INDICATION
     Dosage: UNK
     Route: 065

REACTIONS (33)
  - Motor dysfunction [Unknown]
  - Blood cholesterol increased [Unknown]
  - Aggression [Unknown]
  - Somnolence [Unknown]
  - Muscular weakness [Unknown]
  - Sleep disorder [Unknown]
  - Insomnia [Unknown]
  - Presyncope [Unknown]
  - Oedema peripheral [Unknown]
  - Injection site pain [Unknown]
  - Constipation [Unknown]
  - Lethargy [Unknown]
  - Gait disturbance [Unknown]
  - Alopecia [Unknown]
  - Waist circumference increased [Unknown]
  - Mood altered [Unknown]
  - Decreased appetite [Unknown]
  - Dysuria [Unknown]
  - Blood pressure decreased [Unknown]
  - Visual impairment [Unknown]
  - Dry mouth [Unknown]
  - Dizziness [Unknown]
  - Weight increased [Unknown]
  - Anxiety [Unknown]
  - Speech disorder [Unknown]
  - Hyperhidrosis [Unknown]
  - Gambling disorder [Unknown]
  - Sluggishness [Unknown]
  - Compulsive shopping [Unknown]
  - Asthenia [Unknown]
  - Myalgia [Unknown]
  - Hypersensitivity [Unknown]
  - Restlessness [Unknown]
